FAERS Safety Report 9305626 (Version 1)
Quarter: 2013Q2

REPORT INFORMATION
  Report Type: Spontaneous
  Country: GB (occurrence: GB)
  Receive Date: 20130523
  Receipt Date: 20130523
  Transmission Date: 20140414
  Serious: No
  Sender: FDA-Public Use
  Company Number: GB-JNJFOC-20130405195

PATIENT
  Sex: Male

DRUGS (3)
  1. DUROGESIC DTRANS [Suspect]
     Indication: PAIN
     Route: 062
  2. DUROGESIC DTRANS [Suspect]
     Indication: PAIN
     Route: 062
  3. DUROGESIC DTRANS [Suspect]
     Indication: PAIN
     Route: 062

REACTIONS (2)
  - Wrong technique in drug usage process [Not Recovered/Not Resolved]
  - Drug ineffective [Unknown]
